FAERS Safety Report 13687407 (Version 2)
Quarter: 2019Q3

REPORT INFORMATION
  Report Type: Report from Study
  Country: US (occurrence: US)
  Receive Date: 20170624
  Receipt Date: 20190710
  Transmission Date: 20191004
  Serious: Yes (Other)
  Sender: FDA-Public Use
  Company Number: US-BRISTOL-MYERS SQUIBB COMPANY-BMS-2017-056261

PATIENT
  Age: 45 Year
  Sex: Male

DRUGS (1)
  1. IPILIMUMAB [Suspect]
     Active Substance: IPILIMUMAB
     Indication: HODGKIN^S DISEASE
     Dosage: 3.0 MG/KG, UNK
     Route: 065

REACTIONS (1)
  - Obstructive airways disorder [Unknown]
